FAERS Safety Report 8553117-4 (Version None)
Quarter: 2012Q3

REPORT INFORMATION
  Report Type: 
  Country: None (occurrence: None)
  Receive Date: 20120731
  Receipt Date: 20120723
  Transmission Date: 20120928
  Serious: Yes (Other)
  Sender: FDA-Public Use
  Company Number: AT-BRISTOL-MYERS SQUIBB COMPANY-16794158

PATIENT
  Age: 86 Year
  Sex: Male

DRUGS (4)
  1. IPILIMUMAB [Suspect]
     Indication: METASTATIC MALIGNANT MELANOMA
     Dosage: NO OF COURSES:3
     Route: 042
     Dates: start: 20120516
  2. INSULIN [Concomitant]
  3. PRAVASTATIN SODIUM [Concomitant]
     Dates: start: 20120412
  4. ASPIRIN [Concomitant]
     Dates: start: 20120416

REACTIONS (2)
  - HAEMATOCHEZIA [None]
  - DEHYDRATION [None]
